FAERS Safety Report 13755566 (Version 1)
Quarter: 2017Q3

REPORT INFORMATION
  Report Type: Spontaneous
  Country: US (occurrence: US)
  Receive Date: 20170714
  Receipt Date: 20170714
  Transmission Date: 20171127
  Serious: Yes (Death)
  Sender: FDA-Public Use
  Company Number: None

PATIENT
  Age: 86 Year
  Sex: Male
  Weight: 66 kg

DRUGS (10)
  1. CAPECITABINE. [Suspect]
     Active Substance: CAPECITABINE
     Indication: GASTRIC CANCER
     Dosage: ?          OTHER DOSE:MG;?
     Route: 048
     Dates: start: 20170516
  2. CAPECITABINE. [Suspect]
     Active Substance: CAPECITABINE
     Indication: GASTRIC CANCER
     Dosage: ?          OTHER DOSE:MG;?
     Route: 048
     Dates: start: 20170516
  3. LASIX [Concomitant]
     Active Substance: FUROSEMIDE
  4. DILTIAZEM. [Concomitant]
     Active Substance: DILTIAZEM
  5. ELIQUIS [Concomitant]
     Active Substance: APIXABAN
  6. FINASTERIDE. [Concomitant]
     Active Substance: FINASTERIDE
  7. PROCHLORPERAZINE. [Concomitant]
     Active Substance: PROCHLORPERAZINE
  8. RANITIDINE. [Concomitant]
     Active Substance: RANITIDINE
  9. SIMVASTATIN. [Concomitant]
     Active Substance: SIMVASTATIN
  10. SPIRONOLACTONE. [Concomitant]
     Active Substance: SPIRONOLACTONE

REACTIONS (1)
  - Disease progression [None]

NARRATIVE: CASE EVENT DATE: 20170710
